FAERS Safety Report 4374683-9 (Version None)
Quarter: 2004Q2

REPORT INFORMATION
  Report Type: 
  Country: None (occurrence: None)
  Receive Date: 20040604
  Receipt Date: 20040527
  Transmission Date: 20050107
  Serious: Yes (Other)
  Sender: FDA-Public Use
  Company Number: 2004035820

PATIENT
  Age: 44 Year
  Sex: Male
  Weight: 83.9154 kg

DRUGS (4)
  1. NASALCROM [Suspect]
     Indication: SNORING
     Dosage: 1 SPRAY IN EACH NOSTRIL 1-2 TIMES A DAY, NASAL
     Route: 045
     Dates: end: 20040526
  2. MESALAZINE (MESALAZINE) [Concomitant]
  3. LOPERAMIDE HYDROCHLORIDE [Concomitant]
  4. LOMOTIL [Concomitant]

REACTIONS (1)
  - URINARY RETENTION [None]
